FAERS Safety Report 12940509 (Version 3)
Quarter: 2016Q4

REPORT INFORMATION
  Report Type: Spontaneous
  Country: BG (occurrence: BG)
  Receive Date: 20161115
  Receipt Date: 20161216
  Transmission Date: 20170207
  Serious: Yes (Other)
  Sender: FDA-Public Use
  Company Number: PHHY2016BG154086

PATIENT
  Age: 67 Year
  Sex: Male
  Weight: 75 kg

DRUGS (2)
  1. AFINITOR [Suspect]
     Active Substance: EVEROLIMUS
     Dosage: 5 MG, QD
     Route: 048
     Dates: end: 20130715
  2. AFINITOR [Suspect]
     Active Substance: EVEROLIMUS
     Indication: RENAL CELL CARCINOMA
     Dosage: 10 MG
     Route: 048
     Dates: start: 20110718

REACTIONS (7)
  - Eye swelling [Unknown]
  - Chest pain [Unknown]
  - Fatigue [Unknown]
  - Hypothyroidism [Recovered/Resolved with Sequelae]
  - Peripheral swelling [Unknown]
  - Fluid retention [Unknown]
  - Palpitations [Unknown]

NARRATIVE: CASE EVENT DATE: 20111121
